FAERS Safety Report 6825092-1 (Version None)
Quarter: 2010Q3

REPORT INFORMATION
  Report Type: 
  Country: None (occurrence: None)
  Receive Date: 20100708
  Receipt Date: 20070118
  Transmission Date: 20110219
  Serious: No
  Sender: FDA-Public Use
  Company Number: US-PFIZER INC-2006151962

PATIENT
  Age: 55 Year
  Sex: Female
  Weight: 81.65 kg

DRUGS (11)
  1. CHANTIX [Suspect]
     Indication: SMOKING CESSATION THERAPY
     Route: 048
     Dates: start: 20061120, end: 20061201
  2. PLAVIX [Concomitant]
     Route: 048
  3. TOPROL-XL [Concomitant]
     Route: 048
  4. LEXAPRO [Concomitant]
     Route: 048
  5. LIPITOR [Concomitant]
     Route: 048
  6. IMDUR [Concomitant]
     Route: 048
  7. ZETIA [Concomitant]
     Route: 048
  8. XANAX [Concomitant]
     Route: 048
  9. PREVACID [Concomitant]
  10. ZANTAC [Concomitant]
  11. CARDIAC THERAPY [Concomitant]

REACTIONS (4)
  - ABDOMINAL DISCOMFORT [None]
  - DIARRHOEA [None]
  - MEDICATION RESIDUE [None]
  - NAUSEA [None]
